FAERS Safety Report 17169995 (Version 1)
Quarter: 2019Q4

REPORT INFORMATION
  Report Type: Spontaneous
  Country: GB (occurrence: GB)
  Receive Date: 20191218
  Receipt Date: 20191218
  Transmission Date: 20200122
  Serious: Yes (Death)
  Sender: FDA-Public Use
  Company Number: GB-NOVOPROD-701373

PATIENT
  Age: 73 Year
  Sex: Male
  Weight: 112 kg

DRUGS (1)
  1. VICTOZA [Suspect]
     Active Substance: LIRAGLUTIDE
     Indication: TYPE 2 DIABETES MELLITUS
     Dosage: 1 QD
     Route: 058
     Dates: start: 20170701

REACTIONS (8)
  - Pancreatic carcinoma [Fatal]
  - Abdominal distension [Fatal]
  - Abnormal loss of weight [Fatal]
  - Feeding disorder [Fatal]
  - Metastases to liver [Fatal]
  - Abdominal pain upper [Fatal]
  - Asthenia [Fatal]
  - Liver function test abnormal [Fatal]

NARRATIVE: CASE EVENT DATE: 201904
